FAERS Safety Report 15652235 (Version 1)
Quarter: 2018Q4

REPORT INFORMATION
  Report Type: Spontaneous
  Country: US (occurrence: US)
  Receive Date: 20181123
  Receipt Date: 20181123
  Transmission Date: 20190205
  Serious: Yes (Hospitalization)
  Sender: FDA-Public Use
  Company Number: US-ELI_LILLY_AND_COMPANY-US201811009025

PATIENT
  Age: 71 Year
  Sex: Female
  Weight: 82.99 kg

DRUGS (11)
  1. SINGULAIR [Concomitant]
     Active Substance: MONTELUKAST SODIUM
     Indication: PRODUCT USED FOR UNKNOWN INDICATION
  2. CRESTOR [Concomitant]
     Active Substance: ROSUVASTATIN CALCIUM
     Indication: BLOOD CHOLESTEROL INCREASED
  3. SKELAXIN [METAXALONE] [Concomitant]
     Indication: MUSCLE RELAXANT THERAPY
  4. CELEBREX [Concomitant]
     Active Substance: CELECOXIB
     Indication: PAIN
  5. HUMALOG [Suspect]
     Active Substance: INSULIN LISPRO
     Indication: PRODUCT USED FOR UNKNOWN INDICATION
     Dosage: UNK, UNKNOWN
     Route: 065
  6. ALPRAZOLAM. [Concomitant]
     Active Substance: ALPRAZOLAM
     Indication: SLEEP DISORDER
  7. BACLOFEN. [Concomitant]
     Active Substance: BACLOFEN
     Indication: MUSCLE SPASMS
  8. HUMIRA [Suspect]
     Active Substance: ADALIMUMAB
     Indication: RHEUMATOID ARTHRITIS
     Dosage: 40 MG, ONE IN TWO WEEKS
     Route: 058
     Dates: start: 2006, end: 201810
  9. HUMIRA [Suspect]
     Active Substance: ADALIMUMAB
     Indication: PSORIATIC ARTHROPATHY
     Dosage: 40 MG, ONE IN TWO WEEKS
     Route: 058
     Dates: start: 20181031
  10. BENICAR [Concomitant]
     Active Substance: OLMESARTAN MEDOXOMIL
     Indication: HYPERTENSION
  11. LYRICA [Concomitant]
     Active Substance: PREGABALIN
     Indication: NEURALGIA

REACTIONS (13)
  - Concussion [Recovered/Resolved]
  - Glycosylated haemoglobin abnormal [Unknown]
  - Weight increased [Unknown]
  - Loss of consciousness [Unknown]
  - Blood glucose increased [Recovered/Resolved]
  - Coma [Unknown]
  - Aphasia [Recovered/Resolved]
  - Fluid retention [Not Recovered/Not Resolved]
  - Underdose [Unknown]
  - Skin haemorrhage [Recovered/Resolved]
  - Fall [Recovered/Resolved]
  - Escherichia urinary tract infection [Recovered/Resolved]
  - Head injury [Recovering/Resolving]

NARRATIVE: CASE EVENT DATE: 201810
